FAERS Safety Report 4731611-1 (Version None)
Quarter: 2005Q3

REPORT INFORMATION
  Report Type: 
  Country: None (occurrence: None)
  Receive Date: 20050719
  Receipt Date: 20050207
  Transmission Date: 20060218
  Serious: Yes (Other)
  Sender: FDA-Public Use
  Company Number: 2005BI002728

PATIENT
  Age: 41 Year
  Sex: Female
  Weight: 74.8435 kg

DRUGS (1)
  1. AVONEX [Suspect]
     Indication: MULTIPLE SCLEROSIS
     Dosage: 30 UG;QW;IM
     Route: 030
     Dates: start: 20040601, end: 20050101

REACTIONS (4)
  - FATIGUE [None]
  - HEART RATE IRREGULAR [None]
  - HEPATIC ENZYME INCREASED [None]
  - SINUSITIS [None]
